FAERS Safety Report 19452845 (Version 11)
Quarter: 2021Q3

REPORT INFORMATION
  Report Type: Report from Study
  Country: US (occurrence: US)
  Receive Date: 20210623
  Receipt Date: 20210921
  Transmission Date: 20211014
  Serious: Yes (Hospitalization, Other)
  Sender: FDA-Public Use
  Company Number: US-JNJFOC-20210551251

PATIENT
  Age: 78 Year
  Sex: Male
  Weight: 95.5 kg

DRUGS (6)
  1. MACITENTAN [Suspect]
     Active Substance: MACITENTAN
     Indication: PULMONARY ARTERIAL HYPERTENSION
     Route: 048
  2. SILDENAFIL CITRATE. [Concomitant]
     Active Substance: SILDENAFIL CITRATE
  3. SELEXIPAG [Suspect]
     Active Substance: SELEXIPAG
     Route: 048
  4. TYVASO [Suspect]
     Active Substance: TREPROSTINIL
     Indication: PULMONARY ARTERIAL HYPERTENSION
     Dosage: 3?9 BREATHS
  5. SELEXIPAG [Suspect]
     Active Substance: SELEXIPAG
     Route: 048
  6. SELEXIPAG [Suspect]
     Active Substance: SELEXIPAG
     Indication: PULMONARY ARTERIAL HYPERTENSION
     Route: 048

REACTIONS (10)
  - Dyspnoea [Not Recovered/Not Resolved]
  - Arthralgia [Unknown]
  - Contusion [Unknown]
  - Pulmonary hypertension [Unknown]
  - Dizziness [Not Recovered/Not Resolved]
  - Increased bronchial secretion [Unknown]
  - Limb injury [Unknown]
  - Syncope [Not Recovered/Not Resolved]
  - Pulmonary thrombosis [Unknown]
  - Tinnitus [Unknown]

NARRATIVE: CASE EVENT DATE: 20210525
